FAERS Safety Report 13640250 (Version 1)
Quarter: 2017Q2

REPORT INFORMATION
  Report Type: Report from Study
  Country: AR (occurrence: AR)
  Receive Date: 20170610
  Receipt Date: 20170610
  Transmission Date: 20170830
  Serious: Yes (Death, Other)
  Sender: FDA-Public Use
  Company Number: AR-BRISTOL-MYERS SQUIBB COMPANY-BMS-2017-049906

PATIENT
  Age: 62 Year
  Sex: Male

DRUGS (1)
  1. ABATACEPT [Suspect]
     Active Substance: ABATACEPT
     Indication: RHEUMATOID ARTHRITIS
     Dosage: 750 MG, QMO
     Route: 042
     Dates: start: 20130912

REACTIONS (1)
  - Death [Fatal]

NARRATIVE: CASE EVENT DATE: 20160601
